FAERS Safety Report 8617760-6 (Version None)
Quarter: 2012Q3

REPORT INFORMATION
  Report Type: 
  Country: None (occurrence: None)
  Receive Date: 20120824
  Receipt Date: 20120228
  Transmission Date: 20120928
  Serious: No
  Sender: FDA-Public Use
  Company Number: US-ASTRAZENECA-2012SE14066

PATIENT
  Age: 62 Year
  Sex: Male
  Weight: 123.4 kg

DRUGS (6)
  1. TRIAMCINOLONE ACETONIDE [Concomitant]
     Dosage: BID TO AFFECTED AREA AS NEEDED
  2. GLUCOVANCE [Concomitant]
     Dosage: 2.5MG/500MG ONE TABLET BID
     Route: 048
  3. SYMBICORT [Suspect]
     Dosage: 80/4.5MCG TWO INHALATIONS BID
     Route: 055
  4. AMLODIPINE [Concomitant]
     Route: 048
  5. CARVEDILOL [Concomitant]
     Dosage: 1 TAB QAM AND QPM
     Route: 048
  6. COZAAR [Concomitant]
     Route: 048

REACTIONS (6)
  - TYPE 2 DIABETES MELLITUS [None]
  - HYPERTENSION [None]
  - CANDIDIASIS [None]
  - ORAL PAIN [None]
  - DYSPNOEA [None]
  - NEUROPATHY PERIPHERAL [None]
